FAERS Safety Report 4814019-X (Version None)
Quarter: 2005Q4

REPORT INFORMATION
  Report Type: 
  Country: None (occurrence: None)
  Receive Date: 20051028
  Receipt Date: 20050311
  Transmission Date: 20060501
  Serious: No
  Sender: FDA-Public Use
  Company Number: US-GLAXOSMITHKLINE-A0549433A

PATIENT
  Age: 71 Year
  Sex: Male

DRUGS (4)
  1. SEREVENT [Suspect]
     Indication: CHRONIC OBSTRUCTIVE PULMONARY DISEASE
     Dosage: 1PUFF TWICE PER DAY
     Route: 055
     Dates: start: 20041001
  2. ATROVENT [Concomitant]
  3. METOPROLOL [Concomitant]
  4. HYDROCHLOROTHIAZID [Concomitant]

REACTIONS (1)
  - WEIGHT INCREASED [None]
